FAERS Safety Report 10247758 (Version 2)
Quarter: 2014Q2

REPORT INFORMATION
  Report Type: Spontaneous
  Country: BR (occurrence: BR)
  Receive Date: 20140619
  Receipt Date: 20140619
  Transmission Date: 20141212
  Serious: Yes (Other)
  Sender: FDA-Public Use
  Company Number: PHHY2014BR056314

PATIENT
  Age: 51 Year
  Sex: Female
  Weight: 79 kg

DRUGS (7)
  1. FORASEQ [Suspect]
     Indication: ASTHMA
     Dosage: 2 DF, Q12H
     Route: 055
     Dates: start: 201401
  2. INFLUENZA VIRUS VACC SEASONAL INN [Suspect]
     Indication: IMMUNISATION
     Dates: start: 2013, end: 2013
  3. SIMVASTATIN [Concomitant]
     Indication: BLOOD CHOLESTEROL INCREASED
     Dosage: 1 DF, QD
     Route: 048
  4. OMEPRAZOLE [Concomitant]
     Indication: GASTRIC DISORDER
     Dosage: 1 DF, DAILY
     Route: 048
  5. HYDROCHLOORTHIAZIDE [Concomitant]
     Indication: HYPERTENSION
     Dosage: 1 DF, DAILY
     Route: 048
     Dates: start: 20140616
  6. PAROXETINE [Concomitant]
     Indication: HYPERTENSION
     Dosage: 0.5 DF, DAILY
     Route: 048
     Dates: start: 201405
  7. DIAZEPAM [Concomitant]
     Indication: ANXIETY
     Dosage: 1 DF, DAILY
     Route: 048
     Dates: start: 2003

REACTIONS (15)
  - Tongue disorder [Not Recovered/Not Resolved]
  - Swelling [Not Recovered/Not Resolved]
  - Deafness [Not Recovered/Not Resolved]
  - Fatigue [Not Recovered/Not Resolved]
  - Sinusitis [Not Recovered/Not Resolved]
  - Influenza [Not Recovered/Not Resolved]
  - Dysphonia [Not Recovered/Not Resolved]
  - Pyrexia [Not Recovered/Not Resolved]
  - Headache [Not Recovered/Not Resolved]
  - Pain [Not Recovered/Not Resolved]
  - Glossodynia [Recovering/Resolving]
  - Wrong technique in drug usage process [Unknown]
  - Incorrect dose administered [Unknown]
  - Device malfunction [Unknown]
  - Dyspnoea [Not Recovered/Not Resolved]
